FAERS Safety Report 4591887-0 (Version None)
Quarter: 2005Q1

REPORT INFORMATION
  Report Type: 
  Country: None (occurrence: None)
  Receive Date: 20050222
  Receipt Date: 20050209
  Transmission Date: 20050727
  Serious: Yes (Death, Other)
  Sender: FDA-Public Use
  Company Number: USA-2003-0010191

PATIENT
  Age: 43 Year
  Sex: Female
  Weight: 63.5 kg

DRUGS (9)
  1. HYDROMORPHINE HCL (SIMILAR TO NDA 21-044) (HYDROMORPHONE HYDROCHLORIDE [Suspect]
  2. OXYCONTIN [Suspect]
     Indication: PAIN
  3. DILAUDID [Suspect]
  4. VICODIN ES [Suspect]
  5. CARISOPRODOL [Suspect]
     Dosage: MG
  6. ACETAMINOPHEN [Suspect]
     Dosage: MG
  7. MEPROBAMATE [Suspect]
  8. DOXYLAMINE (DOXYLAMINE) [Suspect]
  9. OXYMORPHONE HYDROCHLORIDE [Suspect]

REACTIONS (11)
  - ALCOHOL POISONING [None]
  - AORTIC ATHEROSCLEROSIS [None]
  - ATHEROSCLEROSIS [None]
  - CHOLECYSTECTOMY [None]
  - CORONARY ARTERY ATHEROSCLEROSIS [None]
  - DRUG ABUSER [None]
  - HYPERTENSIVE HEART DISEASE [None]
  - HYSTERECTOMY [None]
  - MULTIPLE DRUG OVERDOSE ACCIDENTAL [None]
  - RENAL DISORDER [None]
  - STUPOR [None]
